FAERS Safety Report 19758239 (Version 2)
Quarter: 2021Q3

REPORT INFORMATION
  Report Type: Spontaneous
  Country: US (occurrence: US)
  Receive Date: 20210827
  Receipt Date: 20210930
  Transmission Date: 20211014
  Serious: Yes (Hospitalization, Other)
  Sender: FDA-Public Use
  Company Number: US-JNJFOC-20210834898

PATIENT
  Sex: Male
  Weight: 74.91 kg

DRUGS (8)
  1. PALIPERIDONE PALMITATE [Suspect]
     Active Substance: PALIPERIDONE PALMITATE
     Route: 030
     Dates: start: 20210726
  2. TEGRETOL [Concomitant]
     Active Substance: CARBAMAZEPINE
  3. PALIPERIDONE PALMITATE [Suspect]
     Active Substance: PALIPERIDONE PALMITATE
     Indication: SCHIZOAFFECTIVE DISORDER BIPOLAR TYPE
     Route: 030
     Dates: start: 20210613
  4. PALIPERIDONE PALMITATE [Suspect]
     Active Substance: PALIPERIDONE PALMITATE
     Route: 030
     Dates: start: 20210626
  5. GABAPENTIN. [Concomitant]
     Active Substance: GABAPENTIN
     Indication: PRODUCT USED FOR UNKNOWN INDICATION
  6. INVEGA [Suspect]
     Active Substance: PALIPERIDONE
     Indication: SCHIZOAFFECTIVE DISORDER BIPOLAR TYPE
     Route: 048
     Dates: start: 2015
  7. INVEGA [Suspect]
     Active Substance: PALIPERIDONE
     Dosage: 6MG IN THE MORNING AND 6MG IN THE EVENING
     Route: 048
  8. INVEGA [Suspect]
     Active Substance: PALIPERIDONE
     Route: 048

REACTIONS (7)
  - Wrong technique in product usage process [Unknown]
  - Hospitalisation [Unknown]
  - Adverse drug reaction [Unknown]
  - Feeling abnormal [Unknown]
  - Drug ineffective [Unknown]
  - Hallucination, auditory [Unknown]
  - Withdrawal syndrome [Unknown]
